FAERS Safety Report 11101780 (Version 2)
Quarter: 2015Q2

REPORT INFORMATION
  Report Type: Spontaneous
  Country: US (occurrence: US)
  Receive Date: 20150509
  Receipt Date: 20150525
  Transmission Date: 20150821
  Serious: Yes (Other)
  Sender: FDA-Public Use
  Company Number: US-AMGEN-USASP2015043399

PATIENT
  Age: 69 Year
  Sex: Female
  Weight: 96.15 kg

DRUGS (6)
  1. ZANTAC [Concomitant]
     Active Substance: RANITIDINE HYDROCHLORIDE
     Indication: GASTROOESOPHAGEAL REFLUX DISEASE
     Dosage: UNK
     Route: 048
     Dates: start: 20140610
  2. ULTRAM [Concomitant]
     Active Substance: TRAMADOL HYDROCHLORIDE
     Indication: PSORIATIC ARTHROPATHY
     Dosage: 50 MG, Q6H
     Route: 048
     Dates: start: 20140610
  3. DICLOFENAC [Concomitant]
     Active Substance: DICLOFENAC
     Indication: PSORIATIC ARTHROPATHY
     Dosage: 50 MG, BID
     Route: 048
     Dates: start: 20140715
  4. LOTREL [Concomitant]
     Active Substance: AMLODIPINE BESYLATE\BENAZEPRIL HYDROCHLORIDE
     Indication: HYPERTENSION
     Dosage: 5 TO 20 MG, QD
     Route: 048
     Dates: start: 20140610
  5. METOPROLOL [Concomitant]
     Active Substance: METOPROLOL
     Indication: HYPERTENSION
     Dosage: 25 MG, QD
     Route: 048
     Dates: start: 20140610
  6. ENBREL [Suspect]
     Active Substance: ETANERCEPT
     Indication: PSORIATIC ARTHROPATHY
     Dosage: 50 MG, QWK
     Route: 058
     Dates: start: 2003

REACTIONS (11)
  - Onychomadesis [Recovered/Resolved]
  - Condition aggravated [Not Recovered/Not Resolved]
  - Graft haemorrhage [Not Recovered/Not Resolved]
  - Localised infection [Not Recovered/Not Resolved]
  - Psoriasis [Recovered/Resolved]
  - Wound infection staphylococcal [Unknown]
  - Pain in extremity [Not Recovered/Not Resolved]
  - Haematoma [Recovered/Resolved]
  - Gait disturbance [Not Recovered/Not Resolved]
  - Impaired healing [Not Recovered/Not Resolved]
  - Pain [Not Recovered/Not Resolved]

NARRATIVE: CASE EVENT DATE: 2013
